FAERS Safety Report 9161923 (Version 1)
Quarter: 2013Q1

REPORT INFORMATION
  Report Type: Spontaneous
  Country: US (occurrence: None)
  Receive Date: 20130122
  Receipt Date: 20130122
  Transmission Date: 20140127
  Serious: Yes (Other)
  Sender: FDA-Public Use
  Company Number: 2013034471

PATIENT
  Sex: Male
  Weight: 146.06 kg

DRUGS (34)
  1. CARIMUNE [Suspect]
  2. OXYGEN (OXYGEN) [Concomitant]
  3. CYMBALTA (DULOXETINE HYDROCHLORIDE) [Concomitant]
  4. FOSAMAX (ALENDRONATE SODIUM) [Concomitant]
  5. SINGULAIR [Concomitant]
  6. FUROSEMIDE (FUROSEMIDE) [Concomitant]
  7. PREDNISONE (PREDNISONE) [Concomitant]
  8. NASONEX (MOMETASONE FUROATE) [Concomitant]
  9. POTASSIUM CL ER (POTASSIUM) [Concomitant]
  10. OSCAL [Concomitant]
  11. CLONAZEPAM (CLONAZEPAM) (CLONAZEPAM) [Concomitant]
  12. GABAPENTIN (GABAPENTIN) [Concomitant]
  13. FENTANYL (FENTANYL) [Concomitant]
  14. METFORMIN (METFORMIN) [Concomitant]
  15. FINASTERIDE (FINASTERIDE) [Concomitant]
  16. LISINOPRIL (LISINOPRIL) [Concomitant]
  17. CLOBETASOL (CLOBETASOL) [Concomitant]
  18. ADVAIR (SERETIDE /01420901/) [Concomitant]
  19. LOVAZA (OMEGA-3 FATTY ACIDS) [Concomitant]
  20. HYDROCODONE/ACETAMINOPHEN (VICODIN) [Concomitant]
  21. ZYRTEC (CETIRIZINE HYDROCHLORIDE) [Concomitant]
  22. MOBIC (MELOXICAM) [Concomitant]
  23. LUNESTA (ESZOPICLONE) [Concomitant]
  24. XOPENEX (LEVOSALBUTAMOL) [Concomitant]
  25. MUCINEX D (GUAIFENESIN) [Concomitant]
  26. SELENIUM (SELENIUM) [Concomitant]
  27. CARDIZEM CD (DILIIAZEM HYDROCHLORIDE) [Concomitant]
  28. DEXILANT (ALL OTHER THERAPEUTIC PRODUCTS) [Concomitant]
  29. VITAMIN D3 (COLECALCIFEROL) [Concomitant]
  30. EVOXAC (CEVIMELINE HYDROCHLORIDE) [Concomitant]
  31. DIPHENHYDRAMINE (DIPHENHYDRAMINE) [Concomitant]
  32. EPI-PEN (EPINEPHRINE HYDROCHLORIDE) [Concomitant]
  33. RESTASIS (CICLOSPORIN) [Concomitant]
  34. LACTULOSE (LACTULOSE) [Concomitant]

REACTIONS (1)
  - Meningitis aseptic [None]
